FAERS Safety Report 23138353 (Version 1)
Quarter: 2023Q4

REPORT INFORMATION
  Report Type: Spontaneous
  Country: US (occurrence: US)
  Receive Date: 20231102
  Receipt Date: 20231102
  Transmission Date: 20240110
  Serious: Yes (Hospitalization)
  Sender: FDA-Public Use
  Company Number: US-ROCHE-3116704

PATIENT
  Sex: Male

DRUGS (3)
  1. VALGANCICLOVIR [Suspect]
     Active Substance: VALGANCICLOVIR
     Indication: Lung transplant
     Dosage: 450 MG TABLET TWO TIMES DAILY
     Route: 048
     Dates: start: 201903
  2. VALGANCICLOVIR [Suspect]
     Active Substance: VALGANCICLOVIR
     Indication: Lung transplant
     Route: 048
  3. VALGANCICLOVIR [Suspect]
     Active Substance: VALGANCICLOVIR
     Indication: Lung transplant
     Dosage: 450 MG TABLET TWO TIMES DAILY
     Route: 048

REACTIONS (4)
  - Cytomegalovirus infection [Unknown]
  - COVID-19 [Unknown]
  - Product supply issue [Unknown]
  - Off label use [Unknown]
